FAERS Safety Report 6945256-6 (Version None)
Quarter: 2010Q3

REPORT INFORMATION
  Report Type: 
  Country: None (occurrence: None)
  Receive Date: 20100827
  Receipt Date: 20100716
  Transmission Date: 20110219
  Serious: No
  Sender: FDA-Public Use
  Company Number: US-KINGPHARMUSA00001-K201000900

PATIENT
  Sex: Male

DRUGS (2)
  1. FLECTOR [Suspect]
     Indication: EXOSTOSIS
     Dosage: 1 PATCH, SINGLE
     Route: 061
  2. INSULIN [Concomitant]
     Indication: DIABETES MELLITUS
     Dosage: VIA PUMP
     Route: 058

REACTIONS (1)
  - BLOOD GLUCOSE INCREASED [None]
